FAERS Safety Report 23302371 (Version 1)
Quarter: 2023Q4

REPORT INFORMATION
  Report Type: Spontaneous
  Country: US (occurrence: US)
  Receive Date: 20231215
  Receipt Date: 20231215
  Transmission Date: 20240110
  Serious: No
  Sender: FDA-Public Use
  Company Number: US-GSKCCFUS-Case-01876066_AE-104731

PATIENT
  Sex: Female

DRUGS (1)
  1. TRELEGY ELLIPTA [Suspect]
     Active Substance: FLUTICASONE FUROATE\UMECLIDINIUM BROMIDE\VILANTEROL TRIFENATATE
     Indication: Dyspnoea
     Dosage: UNK, 100/62.5/25 MCG
     Route: 055
     Dates: start: 2023

REACTIONS (2)
  - Product dose omission issue [Unknown]
  - Wrong technique in device usage process [Unknown]
